FAERS Safety Report 25809121 (Version 1)
Quarter: 2025Q3

REPORT INFORMATION
  Report Type: Spontaneous
  Country: EU (occurrence: EU)
  Receive Date: 20250916
  Receipt Date: 20250916
  Transmission Date: 20251020
  Serious: Yes (Congenital Anomaly, Other)
  Sender: VERTEX
  Company Number: None

PATIENT

DRUGS (1)
  1. KALYDECO [Suspect]
     Active Substance: IVACAFTOR
     Indication: Cystic fibrosis
     Dosage: QD
     Route: 064
     Dates: start: 202412

REACTIONS (2)
  - Cystic fibrosis [Unknown]
  - Meconium ileus [Unknown]

NARRATIVE: CASE EVENT DATE: 20250101
